FAERS Safety Report 5389004-2 (Version None)
Quarter: 2007Q3

REPORT INFORMATION
  Report Type: 
  Country: None (occurrence: None)
  Receive Date: 20070717
  Receipt Date: 20070712
  Transmission Date: 20080115
  Serious: Yes (Other)
  Sender: FDA-Public Use
  Company Number: DEWYE016112JUL07

PATIENT
  Sex: Female

DRUGS (1)
  1. VENLAFAXINE HCL [Suspect]
     Route: 048

REACTIONS (5)
  - CIRCULATORY COLLAPSE [None]
  - DRUG WITHDRAWAL SYNDROME [None]
  - HYPOMANIA [None]
  - HYPOTONIA [None]
  - LUNG DISORDER [None]
